FAERS Safety Report 5712052-7 (Version None)
Quarter: 2008Q2

REPORT INFORMATION
  Report Type: 
  Country: None (occurrence: None)
  Receive Date: 20080417
  Receipt Date: 20080414
  Transmission Date: 20081010
  Serious: Yes (Hospitalization)
  Sender: FDA-Public Use
  Company Number: 2008SP001811

PATIENT
  Age: 70 Year
  Sex: Male

DRUGS (5)
  1. TEMODAL [Suspect]
     Indication: DRUG USE FOR UNKNOWN INDICATION
     Dosage: 75 MG/M2;QD;PO
     Route: 048
     Dates: start: 20070926, end: 20071107
  2. TEMODAL [Suspect]
     Indication: DRUG USE FOR UNKNOWN INDICATION
     Dosage: 75 MG/M2;QD;PO
     Route: 048
     Dates: start: 20071205, end: 20071209
  3. GASTER (CON.) [Concomitant]
  4. PHENOBAL (CON.) [Concomitant]
  5. RINDERON (CON.) [Concomitant]

REACTIONS (2)
  - DEEP VEIN THROMBOSIS [None]
  - PULMONARY EMBOLISM [None]
